FAERS Safety Report 25476030 (Version 1)
Quarter: 2025Q2

REPORT INFORMATION
  Report Type: Spontaneous
  Country: US (occurrence: US)
  Receive Date: 20250625
  Receipt Date: 20250625
  Transmission Date: 20250717
  Serious: No
  Sender: SANOFI AVENTIS
  Company Number: US-SA-2025SA177919

PATIENT
  Age: 62 Year
  Sex: Female

DRUGS (2)
  1. DUPIXENT [Suspect]
     Active Substance: DUPILUMAB
     Indication: Chronic obstructive pulmonary disease
     Dosage: 300 MG, QOW
     Route: 058
     Dates: start: 202505
  2. SUBLOCADE [Concomitant]
     Active Substance: BUPRENORPHINE

REACTIONS (3)
  - Pharyngitis streptococcal [Unknown]
  - Oropharyngeal pain [Unknown]
  - Ear pain [Unknown]

NARRATIVE: CASE EVENT DATE: 20250501
